FAERS Safety Report 7670980-X (Version None)
Quarter: 2011Q3

REPORT INFORMATION
  Report Type: 
  Country: None (occurrence: None)
  Receive Date: 20110809
  Receipt Date: 20110804
  Transmission Date: 20111222
  Serious: No
  Sender: FDA-Public Use
  Company Number: US-PFIZER INC-2011178937

PATIENT
  Sex: Female

DRUGS (1)
  1. SULFASALAZINE [Suspect]
     Indication: COLITIS
     Dosage: UNK
     Route: 048
     Dates: start: 20110601

REACTIONS (3)
  - FATIGUE [None]
  - APPETITE DISORDER [None]
  - WEIGHT DECREASED [None]
